FAERS Safety Report 10706834 (Version 1)
Quarter: 2015Q1

REPORT INFORMATION
  Report Type: Spontaneous
  Country: US (occurrence: None)
  Receive Date: 20150112
  Receipt Date: 20150112
  Transmission Date: 20150721
  Serious: No
  Sender: FDA-Public Use
  Company Number: None

PATIENT
  Age: 72 Year
  Sex: Male
  Weight: 113.4 kg

DRUGS (7)
  1. ZETIA [Suspect]
     Active Substance: EZETIMIBE
  2. VITAMIN B12 [Concomitant]
     Active Substance: CYANOCOBALAMIN
  3. LISINOPRIL. [Suspect]
     Active Substance: LISINOPRIL
  4. METFORMIN [Suspect]
     Active Substance: METFORMIN HYDROCHLORIDE
     Dosage: 500 MG X 2 DAY
  5. VIT D (ERGOCALCIFEROL CAPS) [Concomitant]
     Active Substance: ERGOCALCIFEROL
  6. TEGRETOL [Suspect]
     Active Substance: CARBAMAZEPINE
     Indication: NERVOUSNESS
     Route: 048
     Dates: start: 20141204, end: 20141218
  7. GLIPIZIDE ER [Suspect]
     Active Substance: GLIPIZIDE

REACTIONS (1)
  - Medication residue present [None]
